FAERS Safety Report 16432231 (Version 1)
Quarter: 2019Q3

REPORT INFORMATION
  Report Type: Spontaneous
  Country: US (occurrence: US)
  Receive Date: 20190614
  Receipt Date: 20190614
  Transmission Date: 20191004
  Serious: Yes (Death, Life-Threatening, Hospitalization)
  Sender: FDA-Public Use
  Company Number: None

PATIENT
  Age: 81 Year
  Sex: Male
  Weight: 70 kg

DRUGS (17)
  1. ATORVASTATIN [Concomitant]
     Active Substance: ATORVASTATIN
  2. INSULIN ASPART [Concomitant]
     Active Substance: INSULIN ASPART
  3. FERROUS SULFATE. [Concomitant]
     Active Substance: FERROUS SULFATE
  4. BASAGLAR [Concomitant]
     Active Substance: INSULIN GLARGINE
  5. ALLOPURINOL. [Concomitant]
     Active Substance: ALLOPURINOL
  6. VITAMIN D3 [Concomitant]
     Active Substance: CHOLECALCIFEROL
  7. OMEPRAZOLE. [Concomitant]
     Active Substance: OMEPRAZOLE
  8. GABAPENTIN. [Concomitant]
     Active Substance: GABAPENTIN
  9. REPAGLINIDE. [Concomitant]
     Active Substance: REPAGLINIDE
  10. METOLAZONE. [Concomitant]
     Active Substance: METOLAZONE
  11. MIDODRINE [Concomitant]
     Active Substance: MIDODRINE
  12. TAMSULOSIN [Concomitant]
     Active Substance: TAMSULOSIN
  13. SILDENAFIL. [Concomitant]
     Active Substance: SILDENAFIL
  14. BUMETANIDE. [Concomitant]
     Active Substance: BUMETANIDE
  15. MAGNESIUM OXIDE. [Concomitant]
     Active Substance: MAGNESIUM OXIDE
  16. METOPROLOL. [Concomitant]
     Active Substance: METOPROLOL
  17. ELIQUIS [Suspect]
     Active Substance: APIXABAN
     Indication: ATRIAL FIBRILLATION
     Route: 048
     Dates: start: 20160831, end: 20190612

REACTIONS (15)
  - Hypotension [None]
  - Rectal haemorrhage [None]
  - Atrial fibrillation [None]
  - Chronic kidney disease [None]
  - Hypertension [None]
  - Skin laceration [None]
  - Transfusion [None]
  - Gastric haemorrhage [None]
  - Haematemesis [None]
  - Dementia [None]
  - Hyperlipidaemia [None]
  - Fall [None]
  - Diabetes mellitus [None]
  - Gastrointestinal haemorrhage [None]
  - Haemoglobin decreased [None]

NARRATIVE: CASE EVENT DATE: 20190605
